FAERS Safety Report 18488272 (Version 1)
Quarter: 2020Q4

REPORT INFORMATION
  Report Type: Spontaneous
  Country: DE (occurrence: DE)
  Receive Date: 20201111
  Receipt Date: 20201111
  Transmission Date: 20210114
  Serious: Yes (Hospitalization)
  Sender: FDA-Public Use
  Company Number: DE-SA-2020SA312172

PATIENT

DRUGS (12)
  1. ACETYLSALICYLIC ACID [Concomitant]
     Active Substance: ASPIRIN
     Dosage: 100 MG, QD (100 MG, 1-0-0-0)
  2. OXALIPLATIN. [Suspect]
     Active Substance: OXALIPLATIN
     Dosage: UNK
     Dates: end: 20200207
  3. FOLINIC ACID [Suspect]
     Active Substance: LEUCOVORIN
     Dosage: UNK
     Dates: end: 20200207
  4. ATORVASTATIN [Concomitant]
     Active Substance: ATORVASTATIN
     Dosage: 30 MG, QD (30 MG, 0-0-1-0)
  5. CANDESARTAN HCT [Concomitant]
     Active Substance: CANDESARTAN CILEXETIL\HYDROCHLOROTHIAZIDE
     Dosage: 1 DF, QD (16|12.5 MG, 1-0-0-0)
  6. PANTOPRAZOLE [Concomitant]
     Active Substance: PANTOPRAZOLE
     Dosage: 40 MG, BID (40 MG, 1-0-1-0)
  7. TORASEMID [Concomitant]
     Active Substance: TORSEMIDE
     Dosage: 10 MG, QD (10 MG, 1-0-0-0)
  8. METFORMIN [Concomitant]
     Active Substance: METFORMIN HYDROCHLORIDE
     Dosage: 500 MG, QD
  9. METOPROLOL. [Concomitant]
     Active Substance: METOPROLOL
     Dosage: 100 MG, QD (100 MG, 1-0-0-0)
  10. FLUOROURACIL. [Suspect]
     Active Substance: FLUOROURACIL
     Dosage: UNK
     Dates: end: 20200207
  11. SPIOLTO RESPIMAT [Concomitant]
     Active Substance: OLODATEROL HYDROCHLORIDE\TIOTROPIUM BROMIDE MONOHYDRATE
     Dosage: 2 DF, QD
  12. LERCANIDIPINE [Concomitant]
     Active Substance: LERCANIDIPINE
     Dosage: 5 MG, QD (10 MG, 0.5-0-0-0)

REACTIONS (5)
  - General physical health deterioration [Unknown]
  - Chills [Unknown]
  - Pyrexia [Unknown]
  - Fatigue [Unknown]
  - Dizziness [Unknown]
